FAERS Safety Report 14430533 (Version 1)
Quarter: 2018Q1

REPORT INFORMATION
  Report Type: Spontaneous
  Country: US (occurrence: US)
  Receive Date: 20180123
  Receipt Date: 20180123
  Transmission Date: 20180509
  Serious: No
  Sender: FDA-Public Use
  Company Number: None

PATIENT
  Age: 74 Year
  Sex: Male

DRUGS (1)
  1. ATORVASTATIN [Suspect]
     Active Substance: ATORVASTATIN
     Route: 048
     Dates: start: 20170913, end: 20180123

REACTIONS (4)
  - High density lipoprotein decreased [None]
  - Low density lipoprotein increased [None]
  - Full blood count increased [None]
  - Blood triglycerides increased [None]
